FAERS Safety Report 23687540 (Version 1)
Quarter: 2024Q1

REPORT INFORMATION
  Report Type: Spontaneous
  Country: US (occurrence: US)
  Receive Date: 20240329
  Receipt Date: 20240329
  Transmission Date: 20240410
  Serious: Yes (Other)
  Sender: FDA-Public Use
  Company Number: US-COOPERSURGICAL, INC.-2024CPS000794

PATIENT
  Age: 25 Year
  Sex: Female
  Weight: 66.67 kg

DRUGS (1)
  1. PARAGARD T 380A [Suspect]
     Active Substance: COPPER
     Indication: Contraception
     Dosage: UNK
     Dates: start: 20231106

REACTIONS (3)
  - Haemorrhagic ovarian cyst [Not Recovered/Not Resolved]
  - Pelvic pain [Unknown]
  - Device dislocation [Not Recovered/Not Resolved]

NARRATIVE: CASE EVENT DATE: 20240311
